FAERS Safety Report 5285230-1 (Version None)
Quarter: 2007Q2

REPORT INFORMATION
  Report Type: 
  Country: None (occurrence: None)
  Receive Date: 20070403
  Receipt Date: 20070328
  Transmission Date: 20071010
  Serious: Yes (Other)
  Sender: FDA-Public Use
  Company Number: BR-PFIZER INC-2007022912

PATIENT
  Sex: Male

DRUGS (7)
  1. FRONTAL [Suspect]
     Indication: INSOMNIA
     Route: 048
  2. SOMALGIN [Concomitant]
     Route: 048
  3. PANTOPRAZOLE [Concomitant]
     Route: 048
  4. ANCORON [Concomitant]
     Route: 048
     Dates: start: 19970101
  5. PLAVIX [Concomitant]
     Route: 048
  6. ARGININE [Concomitant]
     Route: 048
  7. ALL OTHER THERAPEUTIC PRODUCTS [Concomitant]

REACTIONS (3)
  - CEREBRAL ISCHAEMIA [None]
  - DRUG INEFFECTIVE [None]
  - INSOMNIA [None]
